FAERS Safety Report 26148901 (Version 1)
Quarter: 2025Q4

REPORT INFORMATION
  Report Type: Spontaneous
  Country: CA (occurrence: CA)
  Receive Date: 20251212
  Receipt Date: 20251212
  Transmission Date: 20260118
  Serious: Yes (Life-Threatening, Hospitalization, Disabling, Other)
  Sender: Haleon PLC
  Company Number: CA-HALEON-2278697

PATIENT
  Age: 65 Year
  Sex: Female
  Weight: 69 kg

DRUGS (138)
  1. TUMS ULTRA [Suspect]
     Active Substance: CALCIUM CARBONATE
     Indication: Product used for unknown indication
  2. TUMS ULTRA [Suspect]
     Active Substance: CALCIUM CARBONATE
  3. TUMS ULTRA [Suspect]
     Active Substance: CALCIUM CARBONATE
  4. TUMS ULTRA [Suspect]
     Active Substance: CALCIUM CARBONATE
  5. ACETAMINOPHEN [Suspect]
     Active Substance: ACETAMINOPHEN
     Indication: Arthritis
     Dosage: ROA: ORAL
  6. ACETAMINOPHEN [Suspect]
     Active Substance: ACETAMINOPHEN
     Dosage: ROA: ORAL
  7. ACETAMINOPHEN [Suspect]
     Active Substance: ACETAMINOPHEN
     Dosage: ROA: ORAL
  8. ACETAMINOPHEN [Suspect]
     Active Substance: ACETAMINOPHEN
     Dosage: ROA: ORAL
  9. ASPIRIN [Suspect]
     Active Substance: ASPIRIN
     Indication: Product used for unknown indication
     Dosage: ROA: UNKNOWN
  10. ASPIRIN [Suspect]
     Active Substance: ASPIRIN
     Dosage: ROA: UNKNOWN
  11. ASPIRIN [Suspect]
     Active Substance: ASPIRIN
     Dosage: ROA: UNKNOWN
  12. ASPIRIN [Suspect]
     Active Substance: ASPIRIN
     Dosage: ROA: UNKNOWN
  13. ASPIRIN [Suspect]
     Active Substance: ASPIRIN
     Dosage: ROA: UNKNOWN
  14. NEXIUM 24HR [Suspect]
     Active Substance: ESOMEPRAZOLE MAGNESIUM
     Indication: Product used for unknown indication
     Dosage: DOSE FORM: DELAYED RELEASE CAPSULE, ROA: ORAL
  15. NEXIUM 24HR [Suspect]
     Active Substance: ESOMEPRAZOLE MAGNESIUM
     Indication: Product used for unknown indication
     Dosage: ROA: ORAL
  16. NEXIUM 24HR [Suspect]
     Active Substance: ESOMEPRAZOLE MAGNESIUM
     Dosage: ROA: ORAL
  17. NEXIUM 24HR [Suspect]
     Active Substance: ESOMEPRAZOLE MAGNESIUM
     Dosage: ROA: ORAL
  18. NEXIUM 24HR [Suspect]
     Active Substance: ESOMEPRAZOLE MAGNESIUM
     Dosage: ROA: ORAL
  19. NEXIUM 24HR [Suspect]
     Active Substance: ESOMEPRAZOLE MAGNESIUM
     Dosage: ROA: ORAL
  20. NEXIUM 24HR [Suspect]
     Active Substance: ESOMEPRAZOLE MAGNESIUM
     Dosage: ROA: ORAL
  21. NEXIUM 24HR [Suspect]
     Active Substance: ESOMEPRAZOLE MAGNESIUM
     Dosage: ROA: ORAL
  22. NEXIUM 24HR [Suspect]
     Active Substance: ESOMEPRAZOLE MAGNESIUM
     Dosage: ROA: ORAL
  23. ALISKIREN HEMIFUMARATE [Suspect]
     Active Substance: ALISKIREN HEMIFUMARATE
     Indication: Off label use
  24. ALISKIREN HEMIFUMARATE [Suspect]
     Active Substance: ALISKIREN HEMIFUMARATE
     Indication: Microalbuminuria
  25. ALISKIREN HEMIFUMARATE [Suspect]
     Active Substance: ALISKIREN HEMIFUMARATE
     Indication: Hypertension
  26. ALISKIREN HEMIFUMARATE [Suspect]
     Active Substance: ALISKIREN HEMIFUMARATE
  27. ALISKIREN HEMIFUMARATE [Suspect]
     Active Substance: ALISKIREN HEMIFUMARATE
  28. ALISKIREN HEMIFUMARATE [Suspect]
     Active Substance: ALISKIREN HEMIFUMARATE
  29. ALISKIREN HEMIFUMARATE [Suspect]
     Active Substance: ALISKIREN HEMIFUMARATE
  30. ALTACE [Suspect]
     Active Substance: RAMIPRIL
     Indication: Product used for unknown indication
     Dosage: DOSE FORM: CAPSULES, ROA: ORAL
  31. AMLODIPINE BESYLATE [Suspect]
     Active Substance: AMLODIPINE BESYLATE
     Indication: Product used for unknown indication
     Dosage: ROA: ORAL
  32. AMLODIPINE BESYLATE [Suspect]
     Active Substance: AMLODIPINE BESYLATE
     Indication: Product used for unknown indication
     Dosage: ROA: ORAL
  33. AMLODIPINE BESYLATE [Suspect]
     Active Substance: AMLODIPINE BESYLATE
     Dosage: ROA: ORAL
  34. AMLODIPINE BESYLATE [Suspect]
     Active Substance: AMLODIPINE BESYLATE
     Dosage: ROA: ORAL
  35. AMLODIPINE BESYLATE [Suspect]
     Active Substance: AMLODIPINE BESYLATE
     Dosage: ROA: ORAL
  36. AMLODIPINE BESYLATE [Suspect]
     Active Substance: AMLODIPINE BESYLATE
     Dosage: ROA: ORAL
  37. AMLODIPINE BESYLATE [Suspect]
     Active Substance: AMLODIPINE BESYLATE
     Dosage: ROA: ORAL
  38. AMLODIPINE BESYLATE [Suspect]
     Active Substance: AMLODIPINE BESYLATE
     Dosage: ROA: ORAL
  39. AMLODIPINE BESYLATE [Suspect]
     Active Substance: AMLODIPINE BESYLATE
     Dosage: ROA: ORAL
  40. AMLODIPINE BESYLATE [Suspect]
     Active Substance: AMLODIPINE BESYLATE
     Dosage: ROA: UNKNOWN
  41. BISOPROLOL [Suspect]
     Active Substance: BISOPROLOL
     Indication: Product used for unknown indication
     Dosage: ROA: UNKNOWN
  42. GLICLAZIDE [Suspect]
     Active Substance: GLICLAZIDE
     Indication: Diabetes mellitus
  43. GLICLAZIDE [Suspect]
     Active Substance: GLICLAZIDE
     Indication: Blood pressure measurement
  44. DIPHENHYDRAMINE HYDROCHLORIDE [Suspect]
     Active Substance: DIPHENHYDRAMINE HYDROCHLORIDE
     Indication: Premedication
     Dosage: ROA: ORAL
  45. DIPHENHYDRAMINE HYDROCHLORIDE [Suspect]
     Active Substance: DIPHENHYDRAMINE HYDROCHLORIDE
     Dosage: ROA: ORAL
  46. ERGOCALCIFEROL [Suspect]
     Active Substance: ERGOCALCIFEROL
     Indication: Product used for unknown indication
     Dosage: ROA: UNKNOWN
  47. GLICLAZIDE [Suspect]
     Active Substance: GLICLAZIDE
     Indication: Diabetes mellitus
     Dosage: ROA: UNKNOWN
  48. GLICLAZIDE [Suspect]
     Active Substance: GLICLAZIDE
     Indication: Blood pressure measurement
  49. GRAVOL [Suspect]
     Active Substance: DIMENHYDRINATE
     Indication: Premedication
  50. GRAVOL [Suspect]
     Active Substance: DIMENHYDRINATE
  51. GRAVOL [Suspect]
     Active Substance: DIMENHYDRINATE
  52. LEVOTHYROXINE SODIUM [Suspect]
     Active Substance: LEVOTHYROXINE SODIUM
     Indication: Product used for unknown indication
     Dosage: ROA: UNKNOWN
  53. LIPITOR [Suspect]
     Active Substance: ATORVASTATIN CALCIUM
     Indication: Product used for unknown indication
     Dosage: ROA: ORAL
  54. LIPITOR [Suspect]
     Active Substance: ATORVASTATIN CALCIUM
     Dosage: ROA: ORAL
  55. METHOTREXATE [Suspect]
     Active Substance: METHOTREXATE
     Indication: Product used for unknown indication
     Dosage: ROA: INTRATHECAL
  56. METHYLPREDNISOLONE SODIUM SUCCINATE [Suspect]
     Active Substance: METHYLPREDNISOLONE SODIUM SUCCINATE
     Indication: Premedication
     Dosage: ROA: INTRAVENOUS (NOT OTHERWISE SPECIFIED)
  57. METHYLPREDNISOLONE SODIUM SUCCINATE [Suspect]
     Active Substance: METHYLPREDNISOLONE SODIUM SUCCINATE
     Dosage: ROA: INTRAVENOUS (NOT OTHERWISE SPECIFIED)
  58. MORPHINE SULFATE [Suspect]
     Active Substance: MORPHINE SULFATE
     Indication: Product used for unknown indication
  59. NAPROXEN [Suspect]
     Active Substance: NAPROXEN
     Indication: Product used for unknown indication
  60. PREDNISOLONE SODIUM PHOSPHATE [Suspect]
     Active Substance: PREDNISOLONE SODIUM PHOSPHATE
     Indication: Product used for unknown indication
  61. PROCHLORPERAZINE [Suspect]
     Active Substance: PROCHLORPERAZINE
     Indication: Vomiting
  62. ZESTRIL [Suspect]
     Active Substance: LISINOPRIL
     Indication: Product used for unknown indication
     Dosage: ROA: ORAL
  63. CANDESARTAN CILEXETIL [Suspect]
     Active Substance: CANDESARTAN CILEXETIL
     Indication: Product used for unknown indication
     Dosage: ROA: ORAL
  64. CANDESARTAN CILEXETIL [Suspect]
     Active Substance: CANDESARTAN CILEXETIL
     Dosage: ROA: ORAL
  65. CANDESARTAN CILEXETIL [Suspect]
     Active Substance: CANDESARTAN CILEXETIL
     Dosage: ROA: ORAL
  66. CANDESARTAN CILEXETIL [Suspect]
     Active Substance: CANDESARTAN CILEXETIL
     Dosage: ROA: ORAL
  67. COSENTYX [Suspect]
     Active Substance: SECUKINUMAB
     Indication: Psoriasis
     Dosage: ROA: UNKNOWN
  68. COSENTYX [Suspect]
     Active Substance: SECUKINUMAB
     Indication: Hypertension
     Dosage: ROA: UNKNOWN
  69. COSENTYX [Suspect]
     Active Substance: SECUKINUMAB
     Indication: Psoriatic arthropathy
     Dosage: ROA: UNKNOWN
  70. COSENTYX [Suspect]
     Active Substance: SECUKINUMAB
     Dosage: ROA: UNKNOWN
  71. COSENTYX [Suspect]
     Active Substance: SECUKINUMAB
     Dosage: ROA: UNKNOWN
  72. COSENTYX [Suspect]
     Active Substance: SECUKINUMAB
     Dosage: ROA: UNKNOWN
  73. COSENTYX [Suspect]
     Active Substance: SECUKINUMAB
     Dosage: ROA: UNKNOWN
  74. COSENTYX [Suspect]
     Active Substance: SECUKINUMAB
     Dosage: ROA: UNKNOWN
  75. COSENTYX [Suspect]
     Active Substance: SECUKINUMAB
     Dosage: ROA: UNKNOWN
  76. COSENTYX [Suspect]
     Active Substance: SECUKINUMAB
     Dosage: ROA: UNKNOWN
  77. IRBESARTAN [Suspect]
     Active Substance: IRBESARTAN
     Indication: Product used for unknown indication
     Dosage: ROA: ORAL
  78. JANUVIA [Suspect]
     Active Substance: SITAGLIPTIN PHOSPHATE
     Indication: Product used for unknown indication
     Dosage: ROA: ORAL
  79. JANUVIA [Suspect]
     Active Substance: SITAGLIPTIN PHOSPHATE
     Dosage: ROA: ORAL
  80. LISINOPRIL [Suspect]
     Active Substance: LISINOPRIL
     Indication: Hypertension
     Dosage: ROA: ORAL
  81. LISINOPRIL [Suspect]
     Active Substance: LISINOPRIL
     Indication: Hypertension
     Dosage: ROA: ORAL
  82. LISINOPRIL [Suspect]
     Active Substance: LISINOPRIL
     Dosage: ROA: ORAL
  83. LISINOPRIL [Suspect]
     Active Substance: LISINOPRIL
     Dosage: ROA: ORAL
  84. METFORMIN [Suspect]
     Active Substance: METFORMIN HYDROCHLORIDE
     Indication: Product used for unknown indication
  85. METFORMIN [Suspect]
     Active Substance: METFORMIN HYDROCHLORIDE
  86. METFORMIN [Suspect]
     Active Substance: METFORMIN HYDROCHLORIDE
  87. METFORMIN [Suspect]
     Active Substance: METFORMIN HYDROCHLORIDE
  88. MORPHINE [Suspect]
     Active Substance: MORPHINE
     Indication: Product used for unknown indication
  89. ONDANSETRON HYDROCHLORIDE [Suspect]
     Active Substance: ONDANSETRON HYDROCHLORIDE
     Indication: Product used for unknown indication
  90. PREDNISONE [Suspect]
     Active Substance: PREDNISONE
     Indication: Product used for unknown indication
  91. RAMIPRIL [Suspect]
     Active Substance: RAMIPRIL
     Indication: Product used for unknown indication
  92. RITUXIMAB [Suspect]
     Active Substance: RITUXIMAB
     Indication: Product used for unknown indication
     Dosage: ROA: INTRAVENOUS (NOT OTHERWISE SPECIFIED)
  93. RITUXIMAB [Suspect]
     Active Substance: RITUXIMAB
     Dosage: ROA: INTRAVENOUS (NOT OTHERWISE SPECIFIED)
  94. RITUXIMAB [Suspect]
     Active Substance: RITUXIMAB
     Dosage: ROA: INTRAVENOUS (NOT OTHERWISE SPECIFIED)
  95. RITUXIMAB [Suspect]
     Active Substance: RITUXIMAB
     Dosage: ROA: INTRAVENOUS (NOT OTHERWISE SPECIFIED)
  96. RITUXIMAB [Suspect]
     Active Substance: RITUXIMAB
     Dosage: ROA: INTRAVENOUS (NOT OTHERWISE SPECIFIED)
  97. IRBESARTAN [Suspect]
     Active Substance: IRBESARTAN
     Indication: Product used for unknown indication
     Dosage: ROA: ORAL
  98. IRBESARTAN [Suspect]
     Active Substance: IRBESARTAN
     Indication: Product used for unknown indication
  99. IRBESARTAN [Suspect]
     Active Substance: IRBESARTAN
  100. IRBESARTAN [Suspect]
     Active Substance: IRBESARTAN
  101. IRBESARTAN [Suspect]
     Active Substance: IRBESARTAN
  102. IRBESARTAN [Suspect]
     Active Substance: IRBESARTAN
  103. IRBESARTAN [Suspect]
     Active Substance: IRBESARTAN
  104. IRBESARTAN [Suspect]
     Active Substance: IRBESARTAN
  105. IRBESARTAN [Suspect]
     Active Substance: IRBESARTAN
  106. IRBESARTAN [Suspect]
     Active Substance: IRBESARTAN
     Dosage: ROA: ORAL
  107. IRBESARTAN [Suspect]
     Active Substance: IRBESARTAN
     Dosage: ROA: ORAL
  108. IRBESARTAN [Suspect]
     Active Substance: IRBESARTAN
     Dosage: ROA: ORAL
  109. IRBESARTAN [Suspect]
     Active Substance: IRBESARTAN
     Dosage: ROA: ORAL
  110. IRBESARTAN [Suspect]
     Active Substance: IRBESARTAN
     Dosage: ROA: ORAL
  111. IRBESARTAN [Suspect]
     Active Substance: IRBESARTAN
     Dosage: ROA: ORAL
  112. IRBESARTAN [Suspect]
     Active Substance: IRBESARTAN
     Dosage: ROA: ORAL
  113. IRBESARTAN [Suspect]
     Active Substance: IRBESARTAN
     Dosage: ROA: ORAL
  114. IRBESARTAN [Suspect]
     Active Substance: IRBESARTAN
     Dosage: ROA: ORAL
  115. SYNTHROID [Suspect]
     Active Substance: LEVOTHYROXINE SODIUM
     Indication: Product used for unknown indication
  116. ACITRETIN [Concomitant]
     Active Substance: ACITRETIN
     Indication: Product used for unknown indication
     Dosage: ROA: UNKNOWN
  117. PANTOPRAZOLE SODIUM ANHYDROUS [Concomitant]
     Active Substance: PANTOPRAZOLE SODIUM ANHYDROUS
     Indication: Product used for unknown indication
     Dosage: ROA: UNKNOWN
  118. AVAPRO [Concomitant]
     Active Substance: IRBESARTAN
     Indication: Product used for unknown indication
     Dosage: ROA: UNKNOWN
  119. CYANOCOBALAMIN [Concomitant]
     Active Substance: CYANOCOBALAMIN
     Indication: Product used for unknown indication
     Dosage: ROA: UNKNOWN
  120. LEVOTHYROXINE [Concomitant]
     Active Substance: LEVOTHYROXINE
     Indication: Product used for unknown indication
     Dosage: ROA: UNKNOWN
  121. EZETIMIBE [Concomitant]
     Active Substance: EZETIMIBE
     Indication: Product used for unknown indication
  122. LANTUS [Concomitant]
     Active Substance: INSULIN GLARGINE
     Indication: Product used for unknown indication
     Dosage: DOSE FORM: SOLUTION SUBCUTANEOUS, ROA: SUBCUTANEOUS
  123. METHYLPREDNISOLONE ACETATE [Concomitant]
     Active Substance: METHYLPREDNISOLONE ACETATE
     Indication: Product used for unknown indication
  124. TYLENOL [Concomitant]
     Active Substance: ACETAMINOPHEN
     Indication: Product used for unknown indication
  125. ZOLPIDEM [Concomitant]
     Active Substance: ZOLPIDEM TARTRATE
     Indication: Product used for unknown indication
     Dosage: DOSE FORM: TABLET (ORALLY DISINTEGRATING)
  126. AMEVIVE [Concomitant]
     Active Substance: ALEFACEPT
     Indication: Product used for unknown indication
     Dosage: DOSE FORM: POWDER FOR SOLUTION INTRAMUSCULAR, ROA: INTRAMUSCULAR
  127. COAL TAR [Concomitant]
     Active Substance: COAL TAR
     Indication: Product used for unknown indication
  128. CYMBALTA [Concomitant]
     Active Substance: DULOXETINE HYDROCHLORIDE
     Indication: Product used for unknown indication
     Dosage: ROA: UNKNOWN
  129. DOMPERIDONE MALEATE [Concomitant]
     Active Substance: DOMPERIDONE MALEATE
     Indication: Product used for unknown indication
  130. DOVONEX [Concomitant]
     Active Substance: CALCIPOTRIENE
     Indication: Product used for unknown indication
  131. GLUCOPHAGE [Concomitant]
     Active Substance: METFORMIN HYDROCHLORIDE
     Indication: Product used for unknown indication
  132. HUMALOG [Concomitant]
     Active Substance: INSULIN LISPRO
     Indication: Product used for unknown indication
  133. HYDROCHLOROTHIAZIDE [Concomitant]
     Active Substance: HYDROCHLOROTHIAZIDE
     Indication: Product used for unknown indication
  134. LEVEMIR [Concomitant]
     Active Substance: INSULIN DETEMIR
     Indication: Product used for unknown indication
     Dosage: DOSE FORM: SOLUTION SUBCUTANEOUS. ROA: SUBCUTANEOUS
  135. LYRICA [Concomitant]
     Active Substance: PREGABALIN
     Indication: Product used for unknown indication
  136. ROSUVASTATIN CALCIUM [Concomitant]
     Active Substance: ROSUVASTATIN CALCIUM
     Indication: Product used for unknown indication
     Dosage: ROA: SUBCUTANEOUS
  137. STELARA [Concomitant]
     Active Substance: USTEKINUMAB
     Indication: Product used for unknown indication
     Dosage: DOSE FORM: SOLUTION SUBCUTANEOUS, ROA: SUBCUTANEOUS
  138. TELMISARTAN [Concomitant]
     Active Substance: TELMISARTAN
     Indication: Product used for unknown indication

REACTIONS (53)
  - Angina pectoris [Not Recovered/Not Resolved]
  - Arterial occlusive disease [Not Recovered/Not Resolved]
  - Asthenia [Not Recovered/Not Resolved]
  - Pyrexia [Not Recovered/Not Resolved]
  - Fatigue [Not Recovered/Not Resolved]
  - Dysarthria [Not Recovered/Not Resolved]
  - Vomiting [Not Recovered/Not Resolved]
  - Headache [Not Recovered/Not Resolved]
  - Fall [Not Recovered/Not Resolved]
  - Nasopharyngitis [Not Recovered/Not Resolved]
  - Sneezing [Not Recovered/Not Resolved]
  - Influenza like illness [Not Recovered/Not Resolved]
  - Nausea [Not Recovered/Not Resolved]
  - Skin exfoliation [Not Recovered/Not Resolved]
  - Dysphagia [Not Recovered/Not Resolved]
  - Respiratory tract congestion [Not Recovered/Not Resolved]
  - Arthritis [Not Recovered/Not Resolved]
  - Skin haemorrhage [Not Recovered/Not Resolved]
  - Motor dysfunction [Not Recovered/Not Resolved]
  - Influenza [Not Recovered/Not Resolved]
  - Eating disorder [Not Recovered/Not Resolved]
  - Pneumonia [Not Recovered/Not Resolved]
  - Neurologic neglect syndrome [Not Recovered/Not Resolved]
  - Rhinorrhoea [Not Recovered/Not Resolved]
  - Adjustment disorder [Not Recovered/Not Resolved]
  - Sensory loss [Not Recovered/Not Resolved]
  - Confusional state [Not Recovered/Not Resolved]
  - Pain [Not Recovered/Not Resolved]
  - Sinusitis [Not Recovered/Not Resolved]
  - Hemiplegia [Not Recovered/Not Resolved]
  - Aphasia [Not Recovered/Not Resolved]
  - Cough [Not Recovered/Not Resolved]
  - Affect lability [Not Recovered/Not Resolved]
  - Gangrene [Not Recovered/Not Resolved]
  - Sinus congestion [Not Recovered/Not Resolved]
  - Carotid artery thrombosis [Not Recovered/Not Resolved]
  - Cataract [Not Recovered/Not Resolved]
  - Rheumatoid arthritis [Not Recovered/Not Resolved]
  - Chest discomfort [Not Recovered/Not Resolved]
  - Sinus disorder [Not Recovered/Not Resolved]
  - Coordination abnormal [Not Recovered/Not Resolved]
  - Anxiety [Not Recovered/Not Resolved]
  - Cerebrovascular accident [Not Recovered/Not Resolved]
  - Palpitations [Not Recovered/Not Resolved]
  - Psoriasis [Not Recovered/Not Resolved]
  - Gastrointestinal disorder [Not Recovered/Not Resolved]
  - Malaise [Not Recovered/Not Resolved]
  - Blood pressure increased [Not Recovered/Not Resolved]
  - Muscular weakness [Not Recovered/Not Resolved]
  - Cystitis [Not Recovered/Not Resolved]
  - Muscle spasticity [Not Recovered/Not Resolved]
  - Hemiparesis [Not Recovered/Not Resolved]
  - Personality disorder [Not Recovered/Not Resolved]
